FAERS Safety Report 6746927-7 (Version None)
Quarter: 2010Q2

REPORT INFORMATION
  Report Type: 
  Country: None (occurrence: None)
  Receive Date: 20100528
  Receipt Date: 20100104
  Transmission Date: 20101027
  Serious: No
  Sender: FDA-Public Use
  Company Number: US-ASTRAZENECA-2010SE00914

PATIENT
  Age: 87 Year
  Sex: Male

DRUGS (7)
  1. PRILOSEC OTC [Suspect]
     Dosage: 1 TABLET, 1 /DAY FOR 2 DAYS
     Route: 048
     Dates: start: 20100102, end: 20100103
  2. TIMOPTIC [Concomitant]
     Dosage: UNKNOWN
  3. ASPIRIN [Concomitant]
     Dosage: UNKNOWN
  4. XALATAN [Concomitant]
     Dosage: UNKNOWN
  5. LIPITOR [Concomitant]
     Dosage: UNKNOWN
  6. PROPRANOLOL [Concomitant]
     Dosage: UNKNOWN
  7. AVODART [Concomitant]
     Dosage: UNKNOWN

REACTIONS (2)
  - HEART RATE INCREASED [None]
  - HEART RATE IRREGULAR [None]
